FAERS Safety Report 18858514 (Version 1)
Quarter: 2021Q1

REPORT INFORMATION
  Report Type: Spontaneous
  Country: US (occurrence: US)
  Receive Date: 20210208
  Receipt Date: 20210208
  Transmission Date: 20210420
  Serious: No
  Sender: FDA-Public Use
  Company Number: US-009507513-2101USA007113

PATIENT
  Age: 82 Year
  Sex: Male
  Weight: 85.13 kg

DRUGS (6)
  1. KEYTRUDA [Suspect]
     Active Substance: PEMBROLIZUMAB
     Indication: ADENOCARCINOMA OF COLON
     Dosage: 200 MILLIGRAM, Q 21 DAYS
     Route: 042
     Dates: start: 20201028
  2. ADVAIR HFA [Concomitant]
     Active Substance: FLUTICASONE PROPIONATE\SALMETEROL XINAFOATE
     Dosage: 250 MCG?50 MCG/DOSE, 1 PUFF TWICE DAILY
     Dates: start: 20200527
  3. AMLODIPINE [Concomitant]
     Active Substance: AMLODIPINE BESYLATE
     Dosage: 5 MILLIGRAM, QD (1 DAILY)
     Route: 048
     Dates: start: 20180519
  4. HYDROCHLOROTHIAZIDE. [Concomitant]
     Active Substance: HYDROCHLOROTHIAZIDE
     Dosage: 25 MILLIGRAM, QD (1 DAILY)
     Route: 048
     Dates: start: 20180519
  5. IRON (UNSPECIFIED) [Concomitant]
     Active Substance: IRON
     Dosage: 325 MILLIGRAM, QD (1 DAILY)
     Route: 048
     Dates: start: 20201001
  6. ASCORBIC ACID. [Concomitant]
     Active Substance: ASCORBIC ACID
     Dosage: 1000MG, QD (1 DAILY)
     Route: 048
     Dates: start: 20160519

REACTIONS (6)
  - Abnormal faeces [Not Recovered/Not Resolved]
  - Pain [Unknown]
  - Anaemia [Unknown]
  - Intraocular pressure increased [Unknown]
  - Blood thyroid stimulating hormone increased [Unknown]
  - Diarrhoea [Recovered/Resolved]

NARRATIVE: CASE EVENT DATE: 2020
